FAERS Safety Report 4735210-7 (Version None)
Quarter: 2005Q3

REPORT INFORMATION
  Report Type: 
  Country: None (occurrence: None)
  Receive Date: 20050804
  Receipt Date: 20050721
  Transmission Date: 20060218
  Serious: Yes (Death, Hospitalization)
  Sender: FDA-Public Use
  Company Number: 2005068728

PATIENT
  Age: 64 Year
  Sex: Male
  Weight: 104.3273 kg

DRUGS (17)
  1. CELEBREX [Suspect]
     Indication: ARTHRITIS
  2. BEXTRA [Suspect]
     Indication: ARTHRITIS
     Dosage: 20 MG (20 MG, 1 IN 1 D),
  3. LITHIUM CARBONATE [Suspect]
     Indication: BIPOLAR DISORDER
     Dates: end: 20030701
  4. ZYPREXA [Suspect]
     Indication: ILL-DEFINED DISORDER
  5. AGGRENOX [Concomitant]
  6. MONOPRIL [Concomitant]
  7. DEPAKOTE [Concomitant]
  8. SYNTHROID [Concomitant]
  9. POTASSIUM CHLORIDE [Concomitant]
  10. SEROQUEL [Concomitant]
  11. ATENOLOL [Concomitant]
  12. GLUCOPHAGE [Concomitant]
  13. MINOXIDIL [Concomitant]
  14. MONOPRIL [Concomitant]
  15. FUROSEMIDE (FUROSEMIDE) [Concomitant]
  16. ZOCOR [Concomitant]
  17. AVANDIA [Concomitant]

REACTIONS (11)
  - ABDOMINAL DISTENSION [None]
  - AGGRESSION [None]
  - ANTIPSYCHOTIC DRUG LEVEL INCREASED [None]
  - DEMENTIA [None]
  - DIFFICULTY IN WALKING [None]
  - DRUG EFFECT DECREASED [None]
  - DYSKINESIA [None]
  - ERYTHEMA [None]
  - HELICOBACTER INFECTION [None]
  - MYOCARDIAL INFARCTION [None]
  - PRURITUS GENERALISED [None]
